FAERS Safety Report 4485038-0 (Version None)
Quarter: 2004Q4

REPORT INFORMATION
  Report Type: 
  Country: None (occurrence: None)
  Receive Date: 20041022
  Receipt Date: 20041022
  Transmission Date: 20050328
  Serious: Yes (Hospitalization)
  Sender: FDA-Public Use
  Company Number: None

PATIENT
  Age: 71 Year
  Sex: Male
  Weight: 123 kg

DRUGS (4)
  1. CLARITHROMYCIN [Suspect]
     Indication: HELICOBACTER INFECTION
     Dosage: 100 MG
     Route: 048
     Dates: start: 20030930, end: 20031014
  2. AMOXICILLIN [Suspect]
     Dosage: 500 MG
  3. CLARITHROMYCIN [Concomitant]
  4. AMOXICILLIN [Concomitant]

REACTIONS (1)
  - CLOSTRIDIUM COLITIS [None]
